FAERS Safety Report 9064482 (Version 2)
Quarter: 2013Q3

REPORT INFORMATION
  Report Type: Spontaneous
  Country: JP (occurrence: JP)
  Receive Date: 20130128
  Receipt Date: 20130715
  Transmission Date: 20140515
  Serious: Yes (Other)
  Sender: FDA-Public Use
  Company Number: JP-JNJFOC-20130111409

PATIENT
  Age: 85 Year
  Sex: Female

DRUGS (4)
  1. RISPERDAL [Suspect]
     Indication: INSOMNIA
     Route: 048
     Dates: start: 20130114, end: 20130114
  2. SERENACE [Concomitant]
     Indication: INSOMNIA
     Route: 048
     Dates: start: 20130114, end: 20130114
  3. AN UNKNOWN MEDICATION [Concomitant]
     Indication: ANALGESIC THERAPY
     Route: 065
  4. UNSPECIFIED NARCOTIC [Concomitant]
     Indication: ANALGESIC THERAPY
     Route: 065
     Dates: start: 20130113

REACTIONS (5)
  - Loss of consciousness [Recovered/Resolved]
  - Musculoskeletal stiffness [Recovered/Resolved]
  - Tremor [Recovered/Resolved]
  - Blood pressure decreased [Recovered/Resolved]
  - Off label use [Unknown]
